FAERS Safety Report 4792459-5 (Version None)
Quarter: 2005Q4

REPORT INFORMATION
  Report Type: 
  Country: None (occurrence: None)
  Receive Date: 20051010
  Receipt Date: 20041006
  Transmission Date: 20060501
  Serious: No
  Sender: FDA-Public Use
  Company Number: FR-GLAXOSMITHKLINE-B0347287A

PATIENT
  Age: 72 Year
  Sex: Female
  Weight: 66 kg

DRUGS (10)
  1. ZELITREX [Suspect]
     Dosage: .5TAB TWICE PER DAY
     Route: 048
     Dates: start: 19970101
  2. PLAVIX [Concomitant]
     Indication: CAROTID ARTERY STENOSIS
     Dosage: 1TAB PER DAY
     Route: 048
  3. SOTALOL HCL [Concomitant]
     Indication: HYPERTENSION
     Dosage: 120MG PER DAY
     Route: 048
  4. LANZOR [Concomitant]
     Indication: GASTRIC ULCER
     Dosage: 15MG AT NIGHT
     Route: 048
  5. ZOCOR [Concomitant]
     Dosage: 20MG AT NIGHT
     Route: 048
  6. DAFLON [Concomitant]
     Indication: VENOUS INSUFFICIENCY
     Dosage: 1UNIT TWICE PER DAY
     Route: 048
  7. VASTAREL [Concomitant]
     Indication: ANGINA PECTORIS
     Dosage: 35MG TWICE PER DAY
     Route: 048
  8. LAROXYL [Concomitant]
     Dosage: 9DROP PER DAY
  9. KARDEGIC [Concomitant]
     Dosage: 160MG PER DAY
     Route: 048
  10. OROKEN [Concomitant]
     Dosage: 200MG AT NIGHT

REACTIONS (8)
  - BALANCE DISORDER [None]
  - BLOOD CREATINE PHOSPHOKINASE INCREASED [None]
  - MUSCLE SPASMS [None]
  - PAIN [None]
  - PARAESTHESIA [None]
  - PERIPHERAL SENSORY NEUROPATHY [None]
  - PRURITUS GENERALISED [None]
  - RESTLESS LEGS SYNDROME [None]
